FAERS Safety Report 7960713-1 (Version None)
Quarter: 2011Q4

REPORT INFORMATION
  Report Type: 
  Country: None (occurrence: None)
  Receive Date: 20111206
  Receipt Date: 20080221
  Transmission Date: 20120403
  Serious: Yes (Other)
  Sender: FDA-Public Use
  Company Number: PHHY2008TW43092

PATIENT

DRUGS (1)
  1. ZOMETA [Suspect]

REACTIONS (1)
  - BLOOD UREA INCREASED [None]
